FAERS Safety Report 5093936-2 (Version None)
Quarter: 2006Q3

REPORT INFORMATION
  Report Type: 
  Country: None (occurrence: None)
  Receive Date: 20060829
  Receipt Date: 20060817
  Transmission Date: 20061208
  Serious: No
  Sender: FDA-Public Use
  Company Number: 2006093370

PATIENT
  Sex: Male

DRUGS (2)
  1. DIFLUCAN [Suspect]
     Indication: PNEUMONIA
  2. ANTIBIOTICS (ANTIBIOTICS) [Concomitant]

REACTIONS (2)
  - ECZEMA [None]
  - ERYTHEMA [None]
